FAERS Safety Report 8387113-7 (Version None)
Quarter: 2012Q2

REPORT INFORMATION
  Report Type: 
  Country: None (occurrence: None)
  Receive Date: 20120525
  Receipt Date: 20120427
  Transmission Date: 20120825
  Serious: No
  Sender: FDA-Public Use
  Company Number: US-BAYER-2012-048572

PATIENT
  Sex: Male

DRUGS (1)
  1. STAXYN [Suspect]
     Indication: ERECTILE DYSFUNCTION

REACTIONS (1)
  - ERECTILE DYSFUNCTION [None]
